FAERS Safety Report 8102580 (Version 6)
Quarter: 2013Q4

REPORT INFORMATION
  Report Type: Spontaneous
  Country: US (occurrence: US)
  Receive Date: 20110823
  Receipt Date: 20131118
  Transmission Date: 20140711
  Serious: Yes (Hospitalization)
  Sender: FDA-Public Use
  Company Number: US-GLAXOSMITHKLINE-A0915669A

PATIENT
  Age: 69 Year
  Sex: Male
  Weight: 84.1 kg

DRUGS (1)
  1. AVANDIA [Suspect]
     Indication: DIABETES MELLITUS
     Dosage: 4MG PER DAY
     Route: 048
     Dates: start: 200001, end: 200505

REACTIONS (5)
  - Myocardial infarction [Not Recovered/Not Resolved]
  - Cardiac pacemaker insertion [Unknown]
  - Implantable defibrillator insertion [Unknown]
  - Cardiac failure congestive [Unknown]
  - Renal failure acute [Unknown]
